FAERS Safety Report 6115539-0 (Version None)
Quarter: 2009Q1

REPORT INFORMATION
  Report Type: 
  Country: None (occurrence: None)
  Receive Date: 20090313
  Receipt Date: 20090302
  Transmission Date: 20090719
  Serious: No
  Sender: FDA-Public Use
  Company Number: SI-ELI_LILLY_AND_COMPANY-SI200901002925

PATIENT
  Age: 53 Year
  Sex: Male
  Weight: 75.3 kg

DRUGS (6)
  1. ZYPREXA [Suspect]
     Indication: SCHIZOPHRENIA
     Dosage: 15 MG, UNK
     Route: 048
     Dates: start: 20081225, end: 20081227
  2. ZYPREXA [Suspect]
     Dosage: 35 MG, UNK
     Route: 048
     Dates: start: 20081229, end: 20090115
  3. ZYPREXA [Suspect]
     Dosage: 20 MG, UNK
     Route: 048
     Dates: start: 20090116
  4. CLONAZEPAM [Concomitant]
     Dosage: 2 D/F, UNK
  5. SANVAL                             /00914901/ [Concomitant]
     Dosage: 10 MG, AS NEEDED
  6. RINOLAN [Concomitant]
     Indication: DERMATITIS
     Dosage: 10 MG, UNK

REACTIONS (1)
  - OVERDOSE [None]
